FAERS Safety Report 22184191 (Version 3)
Quarter: 2023Q2

REPORT INFORMATION
  Report Type: Report from Study
  Country: US (occurrence: US)
  Receive Date: 20230407
  Receipt Date: 20230613
  Transmission Date: 20230722
  Serious: No
  Sender: FDA-Public Use
  Company Number: US-ACADIA PHARMACEUTICALS INC.-ACA-2023-PIM-001008

PATIENT
  Age: 75 Year
  Sex: Female

DRUGS (20)
  1. NUPLAZID [Suspect]
     Active Substance: PIMAVANSERIN TARTRATE
     Indication: Parkinson^s disease
     Dosage: 34 MILLIGRAM, QD
     Route: 048
     Dates: start: 20230210
  2. NUPLAZID [Suspect]
     Active Substance: PIMAVANSERIN TARTRATE
     Dosage: 34 MILLIGRAM, QD
     Route: 048
     Dates: end: 20230519
  3. SEROQUEL [Suspect]
     Active Substance: QUETIAPINE FUMARATE
  4. ASPIRIN [Concomitant]
     Active Substance: ASPIRIN
  5. ENTACAPONE [Concomitant]
     Active Substance: ENTACAPONE
  6. CINNAMON [CINNAMOMUM VERUM] [Concomitant]
  7. MOVE FREE JOINT HEALTH [Concomitant]
  8. LEVOTHYROXINE SODIUM [Concomitant]
     Active Substance: LEVOTHYROXINE SODIUM
  9. VITAMINS [Concomitant]
     Active Substance: VITAMINS
  10. RIVASTIGMINE [Concomitant]
     Active Substance: RIVASTIGMINE
  11. CARBIDOPA LEVODOPA [Concomitant]
     Active Substance: CARBIDOPA\LEVODOPA
  12. ATENOLOL [Concomitant]
     Active Substance: ATENOLOL
  13. LISINOPRIL [Concomitant]
     Active Substance: LISINOPRIL
  14. HYDROCHLOROTHIAZIDE [Concomitant]
     Active Substance: HYDROCHLOROTHIAZIDE
  15. EZETIMIBE [Concomitant]
     Active Substance: EZETIMIBE
  16. FISH OIL [Concomitant]
     Active Substance: FISH OIL
  17. LORAZEPAM [Concomitant]
     Active Substance: LORAZEPAM
  18. QUETIAPINE FUMARATE [Concomitant]
     Active Substance: QUETIAPINE FUMARATE
  19. CLARITIN [Concomitant]
     Active Substance: LORATADINE
  20. OLANZAPINE [Concomitant]
     Active Substance: OLANZAPINE

REACTIONS (13)
  - Abdominal pain upper [Not Recovered/Not Resolved]
  - Diarrhoea [Not Recovered/Not Resolved]
  - Abnormal behaviour [Not Recovered/Not Resolved]
  - Balance disorder [Not Recovered/Not Resolved]
  - Hypoacusis [Not Recovered/Not Resolved]
  - Hypersomnia [Not Recovered/Not Resolved]
  - Decreased appetite [Not Recovered/Not Resolved]
  - Memory impairment [Not Recovered/Not Resolved]
  - Aggression [Not Recovered/Not Resolved]
  - Somnolence [Not Recovered/Not Resolved]
  - Confusional state [Not Recovered/Not Resolved]
  - Fall [Not Recovered/Not Resolved]
  - Therapeutic product effect decreased [Not Recovered/Not Resolved]

NARRATIVE: CASE EVENT DATE: 20230419
